FAERS Safety Report 24991032 (Version 1)
Quarter: 2025Q1

REPORT INFORMATION
  Report Type: Spontaneous
  Country: US (occurrence: US)
  Receive Date: 20250220
  Receipt Date: 20250220
  Transmission Date: 20250408
  Serious: No
  Sender: XERIS PHARMACEUTICALS
  Company Number: US-BRIAN CONNER SVP QUALITY AND CHIEF COMPLIANCE OFFICER-2025XER00069

PATIENT
  Sex: Female
  Weight: 63.503 kg

DRUGS (3)
  1. GVOKE [Suspect]
     Active Substance: GLUCAGON
     Indication: Hypoglycaemia
  2. UNSPECIFIED MENTAL MEDICATION [Concomitant]
  3. UNSPECIFIED STOMACH MEDICATION [Concomitant]

REACTIONS (2)
  - Product packaging quantity issue [Unknown]
  - No adverse event [Unknown]
